FAERS Safety Report 7087279-5 (Version None)
Quarter: 2010Q4

REPORT INFORMATION
  Report Type: 
  Country: None (occurrence: None)
  Receive Date: 20101107
  Receipt Date: 20090128
  Transmission Date: 20110411
  Serious: Yes (Hospitalization)
  Sender: FDA-Public Use
  Company Number: PHHY2009US66888

PATIENT
  Sex: Female

DRUGS (1)
  1. EXJADE [Suspect]
     Dosage: 1250 MG, QD
     Route: 048
     Dates: start: 20090206

REACTIONS (2)
  - RASH ERYTHEMATOUS [None]
  - THROMBOSIS [None]
